FAERS Safety Report 6504140-2 (Version None)
Quarter: 2009Q4

REPORT INFORMATION
  Report Type: 
  Country: None (occurrence: None)
  Receive Date: 20091217
  Receipt Date: 20091208
  Transmission Date: 20100525
  Serious: Yes (Other)
  Sender: FDA-Public Use
  Company Number: US-BAXTER-2009BH019322

PATIENT
  Sex: Female

DRUGS (1)
  1. PHENERGAN HCL [Suspect]
     Indication: DRUG USE FOR UNKNOWN INDICATION
     Route: 065
     Dates: start: 20071108

REACTIONS (4)
  - COMPARTMENT SYNDROME [None]
  - COMPLEX REGIONAL PAIN SYNDROME [None]
  - EXTRAVASATION [None]
  - INFECTION [None]
